FAERS Safety Report 10223222 (Version 2)
Quarter: 2014Q2

REPORT INFORMATION
  Report Type: Spontaneous
  Country: US (occurrence: US)
  Receive Date: 20140609
  Receipt Date: 20140609
  Transmission Date: 20141212
  Serious: No
  Sender: FDA-Public Use
  Company Number: US-DRREDDYS-USA/USA/13/0028988

PATIENT
  Age: 12 Year
  Sex: Female
  Weight: 40.8 kg

DRUGS (1)
  1. FEXOFENADINE HCL  OTC [Suspect]
     Indication: SEASONAL ALLERGY
     Route: 048
     Dates: start: 20130407

REACTIONS (7)
  - Tachycardia [Recovered/Resolved]
  - Hypertension [Recovered/Resolved]
  - Dyspnoea [Recovered/Resolved]
  - Feeling abnormal [Recovered/Resolved]
  - Feeling jittery [Recovered/Resolved]
  - Dizziness [Recovered/Resolved]
  - Tremor [Recovered/Resolved]
